FAERS Safety Report 8067961-3 (Version None)
Quarter: 2012Q1

REPORT INFORMATION
  Report Type: 
  Country: None (occurrence: None)
  Receive Date: 20120124
  Receipt Date: 20110906
  Transmission Date: 20120608
  Serious: No
  Sender: FDA-Public Use
  Company Number: US-AMGEN-USASP2011045584

PATIENT
  Age: 68 Year
  Sex: Female

DRUGS (7)
  1. PROSTATIN                          /00672301/ [Concomitant]
  2. CALCIUM [Concomitant]
  3. SYMBICORT [Concomitant]
  4. PREDNISONE [Concomitant]
     Dosage: 1 MG, UNK
  5. PROLIA [Suspect]
     Indication: OSTEOPOROSIS POSTMENOPAUSAL
     Dosage: 60 MG, Q6MO
     Dates: start: 20110101
  6. VITAMIN D [Concomitant]
  7. METHOTREXATE [Concomitant]

REACTIONS (3)
  - PAIN [None]
  - MUSCULOSKELETAL DISCOMFORT [None]
  - MUSCULOSKELETAL STIFFNESS [None]
